FAERS Safety Report 5994492-4 (Version None)
Quarter: 2008Q4

REPORT INFORMATION
  Report Type: 
  Country: None (occurrence: None)
  Receive Date: 20081209
  Receipt Date: 20081009
  Transmission Date: 20090506
  Serious: No
  Sender: FDA-Public Use
  Company Number: 002#2#2008-00701

PATIENT
  Age: 65 Year
  Sex: Female
  Weight: 70.7611 kg

DRUGS (8)
  1. NEUPRO [Suspect]
     Indication: PARKINSONISM
     Dosage: 2MG/24H,1 IN 1 D,TRANSDERMAL ; 4MG/24H,1 IN1 D,TRANSDERMAL
     Route: 062
     Dates: start: 20070101, end: 20071201
  2. NEUPRO [Suspect]
     Indication: PARKINSONISM
     Dosage: 2MG/24H,1 IN 1 D,TRANSDERMAL ; 4MG/24H,1 IN1 D,TRANSDERMAL
     Route: 062
     Dates: start: 20071201
  3. SINEMET [Concomitant]
  4. AMANTADINE HCL [Concomitant]
  5. CLONAPINE [Concomitant]
  6. PANTOPRAZOLE SODIUM [Concomitant]
  7. VITAMIN D [Concomitant]
  8. ASPIRIN [Concomitant]

REACTIONS (5)
  - APPLICATION SITE ERYTHEMA [None]
  - APPLICATION SITE PRURITUS [None]
  - APPLICATION SITE REACTION [None]
  - FATIGUE [None]
  - PRODUCT QUALITY ISSUE [None]
